FAERS Safety Report 7748154-3 (Version None)
Quarter: 2011Q3

REPORT INFORMATION
  Report Type: 
  Country: None (occurrence: None)
  Receive Date: 20110913
  Receipt Date: 20110829
  Transmission Date: 20111222
  Serious: Yes (Hospitalization, Other)
  Sender: FDA-Public Use
  Company Number: TW-WATSON-2011-14346

PATIENT
  Age: 40 Year
  Sex: Female

DRUGS (2)
  1. ZOLPIDEM TARTRATE [Suspect]
     Indication: INSOMNIA
     Dosage: 1000 MG, DAILY (ZOLPIDEM X 3 YRS AND ABOUT 1000 MG FOR THE PAST YEAR)
     Route: 065
  2. ZOLPIDEM TARTRATE [Suspect]
     Indication: MOVEMENT DISORDER

REACTIONS (10)
  - OVERDOSE [None]
  - DRUG DEPENDENCE [None]
  - HYPERHIDROSIS [None]
  - DRUG WITHDRAWAL CONVULSIONS [None]
  - LOSS OF CONSCIOUSNESS [None]
  - TREMOR [None]
  - PALPITATIONS [None]
  - WITHDRAWAL SYNDROME [None]
  - FEELING JITTERY [None]
  - NAUSEA [None]
